FAERS Safety Report 8317603-4 (Version None)
Quarter: 2012Q2

REPORT INFORMATION
  Report Type: 
  Country: None (occurrence: None)
  Receive Date: 20120427
  Receipt Date: 20111020
  Transmission Date: 20120825
  Serious: No
  Sender: FDA-Public Use
  Company Number: US-GLAXOSMITHKLINE-A0950687A

PATIENT
  Age: 39 Year
  Sex: Female
  Weight: 82.7 kg

DRUGS (2)
  1. BOOSTRIX [Suspect]
     Indication: PROPHYLAXIS
     Dosage: .5ML SINGLE DOSE
     Route: 065
     Dates: start: 20111020, end: 20111020
  2. ZOFRAN [Suspect]
     Indication: VOMITING
     Dosage: 8MG AS REQUIRED
     Route: 065
     Dates: start: 20110328

REACTIONS (3)
  - LIVE BIRTH [None]
  - MATERNAL EXPOSURE DURING PREGNANCY [None]
  - WRONG DRUG ADMINISTERED [None]
